FAERS Safety Report 11984582 (Version 1)
Quarter: 2016Q1

REPORT INFORMATION
  Report Type: Spontaneous
  Country: US (occurrence: US)
  Receive Date: 20160201
  Receipt Date: 20160201
  Transmission Date: 20160526
  Serious: No
  Sender: FDA-Public Use
  Company Number: US-GLAXOSMITHKLINE-US2016011990

PATIENT
  Age: 76 Year
  Sex: Female

DRUGS (1)
  1. NICORETTE [Suspect]
     Active Substance: NICOTINE
     Indication: TOBACCO USER
     Dosage: 4 MG, UNK
     Dates: start: 201512

REACTIONS (3)
  - Product use issue [Unknown]
  - Muscle spasms [Not Recovered/Not Resolved]
  - Nicotine dependence [Not Recovered/Not Resolved]

NARRATIVE: CASE EVENT DATE: 201512
